FAERS Safety Report 25581213 (Version 1)
Quarter: 2025Q3

REPORT INFORMATION
  Report Type: Spontaneous
  Country: US (occurrence: US)
  Receive Date: 20250718
  Receipt Date: 20250718
  Transmission Date: 20251020
  Serious: No
  Sender: NOVO NORDISK
  Company Number: US-NOVOPROD-1364732

PATIENT
  Age: 59 Year
  Sex: Female

DRUGS (2)
  1. WEGOVY [Suspect]
     Active Substance: SEMAGLUTIDE
     Dosage: 1.7 MG, QW
     Route: 058
     Dates: start: 20250117, end: 20250131
  2. WEGOVY [Suspect]
     Active Substance: SEMAGLUTIDE
     Indication: Weight control
     Route: 058
     Dates: start: 20240920

REACTIONS (12)
  - Dyspnoea [Unknown]
  - Chest discomfort [Unknown]
  - Nervousness [Recovered/Resolved]
  - Feeling jittery [Unknown]
  - Oropharyngeal discomfort [Unknown]
  - Chest pain [Unknown]
  - COVID-19 [Not Recovered/Not Resolved]
  - Dehydration [Unknown]
  - Pyrexia [Unknown]
  - Dizziness [Unknown]
  - Fatigue [Recovered/Resolved]
  - Nausea [Unknown]

NARRATIVE: CASE EVENT DATE: 20250102
